FAERS Safety Report 20721211 (Version 1)
Quarter: 2022Q2

REPORT INFORMATION
  Report Type: Spontaneous
  Country: US (occurrence: None)
  Receive Date: 20220418
  Receipt Date: 20220418
  Transmission Date: 20220721
  Serious: Yes (Death)
  Sender: FDA-Public Use
  Company Number: None

PATIENT
  Sex: Male

DRUGS (2)
  1. EUFLEXXA [Suspect]
     Active Substance: HYALURONATE SODIUM
     Indication: Osteoarthritis
     Dosage: FREQUENCY : 3 TIMES A WEEK;?
     Route: 014
     Dates: start: 20211214, end: 202201
  2. EUFLEXXA [Suspect]
     Active Substance: HYALURONATE SODIUM
     Dosage: OTHER QUANTITY : 1 SYRINGE;?FREQUENCY : 3 TIMES A WEEK;?
     Route: 014

REACTIONS (1)
  - Death [None]
